FAERS Safety Report 23539723 (Version 1)
Quarter: 2024Q1

REPORT INFORMATION
  Report Type: Spontaneous
  Country: FR (occurrence: FR)
  Receive Date: 20240219
  Receipt Date: 20240219
  Transmission Date: 20240409
  Serious: Yes (Hospitalization)
  Sender: FDA-Public Use
  Company Number: None

PATIENT
  Age: 21 Year
  Sex: Male
  Weight: 70 kg

DRUGS (3)
  1. KETOPROFEN [Suspect]
     Active Substance: KETOPROFEN
     Indication: Intentional overdose
     Dosage: 100 MG X 17 TABS
     Route: 048
     Dates: start: 20230921, end: 20230921
  2. TRAMADOL [Concomitant]
     Active Substance: TRAMADOL\TRAMADOL HYDROCHLORIDE
     Indication: Intentional overdose
     Route: 048
     Dates: start: 20230921, end: 20230921
  3. VALPROMIDE [Suspect]
     Active Substance: VALPROMIDE
     Indication: Intentional overdose
     Route: 048
     Dates: start: 20230921, end: 20230921

REACTIONS (3)
  - Altered state of consciousness [Recovered/Resolved]
  - Abdominal pain [Recovered/Resolved]
  - Poisoning deliberate [Recovered/Resolved]

NARRATIVE: CASE EVENT DATE: 20230921
